FAERS Safety Report 25460709 (Version 3)
Quarter: 2025Q4

REPORT INFORMATION
  Report Type: Spontaneous
  Country: CA (occurrence: CA)
  Receive Date: 20250620
  Receipt Date: 20251021
  Transmission Date: 20260117
  Serious: Yes (Death, Other)
  Sender: BRISTOL-MYERS SQUIBB COMPANY
  Company Number: CA-BRISTOL-MYERS SQUIBB COMPANY-2025-088231

PATIENT
  Age: 96 Year
  Sex: Female

DRUGS (219)
  1. ORENCIA [Suspect]
     Active Substance: ABATACEPT
     Indication: Rheumatoid arthritis
  2. ORENCIA [Suspect]
     Active Substance: ABATACEPT
     Indication: Rheumatoid arthritis
  3. ORENCIA [Suspect]
     Active Substance: ABATACEPT
  4. ORENCIA [Suspect]
     Active Substance: ABATACEPT
  5. ORENCIA [Suspect]
     Active Substance: ABATACEPT
     Indication: Rheumatoid arthritis
  6. CHOLECALCIFEROL [Concomitant]
     Active Substance: CHOLECALCIFEROL
     Indication: Product used for unknown indication
  7. CERTOLIZUMAB PEGOL [Concomitant]
     Active Substance: CERTOLIZUMAB PEGOL
     Indication: Product used for unknown indication
  8. CERTOLIZUMAB PEGOL [Concomitant]
     Active Substance: CERTOLIZUMAB PEGOL
  9. CALCIUM ASCORBATE [Concomitant]
     Active Substance: CALCIUM ASCORBATE
     Indication: Product used for unknown indication
  10. BOTULINUM TOXIN NOS [Concomitant]
     Active Substance: BOTULINUM TOXIN NOS
     Indication: Product used for unknown indication
  11. ARAVA [Concomitant]
     Active Substance: LEFLUNOMIDE
     Indication: Rheumatoid arthritis
  12. ARAVA [Concomitant]
     Active Substance: LEFLUNOMIDE
  13. ARAVA [Concomitant]
     Active Substance: LEFLUNOMIDE
  14. ARAVA [Concomitant]
     Active Substance: LEFLUNOMIDE
  15. ARAVA [Concomitant]
     Active Substance: LEFLUNOMIDE
  16. ARAVA [Concomitant]
     Active Substance: LEFLUNOMIDE
  17. ALENDRONATE SODIUM [Concomitant]
     Active Substance: ALENDRONATE SODIUM
     Indication: Rheumatoid arthritis
  18. CORTISONE ACETATE [Concomitant]
     Active Substance: CORTISONE ACETATE
     Indication: Rheumatoid arthritis
  19. CETIRIZINE HYDROCHLORIDE\PSEUDOEPHEDRINE HYDROCHLORIDE [Concomitant]
     Active Substance: CETIRIZINE HYDROCHLORIDE\PSEUDOEPHEDRINE HYDROCHLORIDE
     Indication: Rheumatoid arthritis
  20. CETIRIZINE HYDROCHLORIDE\PSEUDOEPHEDRINE HYDROCHLORIDE [Concomitant]
     Active Substance: CETIRIZINE HYDROCHLORIDE\PSEUDOEPHEDRINE HYDROCHLORIDE
  21. CETIRIZINE HYDROCHLORIDE\PSEUDOEPHEDRINE HYDROCHLORIDE [Concomitant]
     Active Substance: CETIRIZINE HYDROCHLORIDE\PSEUDOEPHEDRINE HYDROCHLORIDE
  22. CETIRIZINE HYDROCHLORIDE\PSEUDOEPHEDRINE HYDROCHLORIDE [Concomitant]
     Active Substance: CETIRIZINE HYDROCHLORIDE\PSEUDOEPHEDRINE HYDROCHLORIDE
  23. CETIRIZINE HYDROCHLORIDE\PSEUDOEPHEDRINE HYDROCHLORIDE [Concomitant]
     Active Substance: CETIRIZINE HYDROCHLORIDE\PSEUDOEPHEDRINE HYDROCHLORIDE
  24. CANDESARTAN [Concomitant]
     Active Substance: CANDESARTAN
     Indication: Migraine
  25. BUTRANS [Concomitant]
     Active Substance: BUPRENORPHINE
     Indication: Product used for unknown indication
     Dosage: PATCH
  26. BERINERT [Concomitant]
     Active Substance: HUMAN C1-ESTERASE INHIBITOR
     Indication: Product used for unknown indication
  27. PREDNISONE [Concomitant]
     Active Substance: PREDNISONE
     Indication: Rheumatoid arthritis
  28. PREDNISONE [Concomitant]
     Active Substance: PREDNISONE
  29. PREDNISONE [Concomitant]
     Active Substance: PREDNISONE
  30. ADALIMUMAB [Concomitant]
     Active Substance: ADALIMUMAB
     Indication: Rheumatoid arthritis
  31. ADALIMUMAB [Concomitant]
     Active Substance: ADALIMUMAB
  32. ADALIMUMAB [Concomitant]
     Active Substance: ADALIMUMAB
  33. ADALIMUMAB [Concomitant]
     Active Substance: ADALIMUMAB
  34. ADALIMUMAB [Concomitant]
     Active Substance: ADALIMUMAB
  35. COSENTYX [Concomitant]
     Active Substance: SECUKINUMAB
     Indication: Psoriatic arthropathy
  36. COSENTYX [Concomitant]
     Active Substance: SECUKINUMAB
  37. CIMZIA [Concomitant]
     Active Substance: CERTOLIZUMAB PEGOL
     Indication: Rheumatoid arthritis
  38. CIMZIA [Concomitant]
     Active Substance: CERTOLIZUMAB PEGOL
     Indication: Psoriasis
  39. CHLORHEXIDINE GLUCONATE [Concomitant]
     Active Substance: CHLORHEXIDINE GLUCONATE
     Indication: Rheumatoid arthritis
  40. CETIRIZINE HYDROCHLORIDE [Concomitant]
     Active Substance: CETIRIZINE HYDROCHLORIDE
     Indication: Rheumatoid arthritis
  41. CETIRIZINE HYDROCHLORIDE [Concomitant]
     Active Substance: CETIRIZINE HYDROCHLORIDE
  42. CETIRIZINE HYDROCHLORIDE [Concomitant]
     Active Substance: CETIRIZINE HYDROCHLORIDE
  43. CELECOXIB [Concomitant]
     Active Substance: CELECOXIB
     Indication: Product used for unknown indication
  44. CELECOXIB [Concomitant]
     Active Substance: CELECOXIB
  45. CELECOXIB [Concomitant]
     Active Substance: CELECOXIB
  46. CELECOXIB [Concomitant]
     Active Substance: CELECOXIB
  47. CALCIUM GLUBIONATE [Concomitant]
     Active Substance: CALCIUM GLUBIONATE
     Indication: Product used for unknown indication
  48. CALCIUM [Concomitant]
     Active Substance: CALCIUM
     Indication: Product used for unknown indication
  49. BUPRENORPHINE HYDROCHLORIDE [Concomitant]
     Active Substance: BUPRENORPHINE HYDROCHLORIDE
     Indication: Product used for unknown indication
  50. BETAMETHASONE [Concomitant]
     Active Substance: BETAMETHASONE
     Indication: Product used for unknown indication
  51. ATOMOXETINE HYDROCHLORIDE [Concomitant]
     Active Substance: ATOMOXETINE HYDROCHLORIDE
     Indication: Migraine
  52. ATOMOXETINE HYDROCHLORIDE [Concomitant]
     Active Substance: ATOMOXETINE HYDROCHLORIDE
  53. APREMILAST [Concomitant]
     Active Substance: APREMILAST
     Indication: Product used for unknown indication
  54. ALENDRONATE SODIUM\CHOLECALCIFEROL [Concomitant]
     Active Substance: ALENDRONATE SODIUM\CHOLECALCIFEROL
     Indication: Rheumatoid arthritis
  55. AIMOVIG [Concomitant]
     Active Substance: ERENUMAB-AOOE
     Indication: Migraine
  56. ACTEMRA [Concomitant]
     Active Substance: TOCILIZUMAB
     Indication: Rheumatoid arthritis
  57. ACTEMRA [Concomitant]
     Active Substance: TOCILIZUMAB
  58. ACTEMRA [Concomitant]
     Active Substance: TOCILIZUMAB
  59. ACTEMRA [Concomitant]
     Active Substance: TOCILIZUMAB
  60. ACTEMRA [Concomitant]
     Active Substance: TOCILIZUMAB
  61. ACTEMRA [Concomitant]
     Active Substance: TOCILIZUMAB
  62. ACTEMRA [Concomitant]
     Active Substance: TOCILIZUMAB
  63. ACTEMRA [Concomitant]
     Active Substance: TOCILIZUMAB
  64. ACTEMRA [Concomitant]
     Active Substance: TOCILIZUMAB
  65. ACTEMRA [Concomitant]
     Active Substance: TOCILIZUMAB
  66. ACETAMINOPHEN AND CODEINE [Concomitant]
     Active Substance: ACETAMINOPHEN\CODEINE PHOSPHATE
     Indication: Product used for unknown indication
  67. ACETAMINOPHEN AND CODEINE [Concomitant]
     Active Substance: ACETAMINOPHEN\CODEINE PHOSPHATE
  68. CYCLOBENZAPRINE [Concomitant]
     Active Substance: CYCLOBENZAPRINE
     Indication: Product used for unknown indication
  69. DESOXIMETASONE [Concomitant]
     Active Substance: DESOXIMETASONE
     Indication: Rheumatoid arthritis
  70. DESOXIMETASONE [Concomitant]
     Active Substance: DESOXIMETASONE
  71. DESOXIMETASONE [Concomitant]
     Active Substance: DESOXIMETASONE
  72. DESOXIMETASONE [Concomitant]
     Active Substance: DESOXIMETASONE
  73. DESOXIMETASONE [Concomitant]
     Active Substance: DESOXIMETASONE
  74. DESOXIMETASONE [Concomitant]
     Active Substance: DESOXIMETASONE
  75. DESOXIMETASONE [Concomitant]
     Active Substance: DESOXIMETASONE
  76. DESOXIMETASONE [Concomitant]
     Active Substance: DESOXIMETASONE
  77. DESOXIMETASONE [Concomitant]
     Active Substance: DESOXIMETASONE
  78. DICLOFENAC POTASSIUM [Concomitant]
     Active Substance: DICLOFENAC POTASSIUM
     Indication: Product used for unknown indication
  79. DICLOFENAC SODIUM [Concomitant]
     Active Substance: DICLOFENAC SODIUM
     Indication: Product used for unknown indication
  80. DICLOFENAC SODIUM [Concomitant]
     Active Substance: DICLOFENAC SODIUM
  81. DICLOFENAC SODIUM [Concomitant]
     Active Substance: DICLOFENAC SODIUM
  82. ENBREL [Concomitant]
     Active Substance: ETANERCEPT
     Indication: Rheumatoid arthritis
  83. ERELZI [Concomitant]
     Active Substance: ETANERCEPT-SZZS
     Indication: Rheumatoid arthritis
  84. ERENUMAB [Concomitant]
     Active Substance: ERENUMAB
     Indication: Migraine
  85. FINACEA [Concomitant]
     Active Substance: AZELAIC ACID
     Indication: Product used for unknown indication
  86. FLUMETHASONE [Concomitant]
     Active Substance: FLUMETHASONE
     Indication: Product used for unknown indication
  87. FOLIC ACID [Concomitant]
     Active Substance: FOLIC ACID
     Indication: Rheumatoid arthritis
  88. FOLIC ACID [Concomitant]
     Active Substance: FOLIC ACID
  89. FOLIC ACID [Concomitant]
     Active Substance: FOLIC ACID
  90. FOLIC ACID [Concomitant]
     Active Substance: FOLIC ACID
  91. FOLIC ACID [Concomitant]
     Active Substance: FOLIC ACID
  92. FOLIC ACID [Concomitant]
     Active Substance: FOLIC ACID
  93. FOLIC ACID [Concomitant]
     Active Substance: FOLIC ACID
  94. FOLIC ACID [Concomitant]
     Active Substance: FOLIC ACID
  95. FOLIC ACID [Concomitant]
     Active Substance: FOLIC ACID
  96. FOSAMAX [Concomitant]
     Active Substance: ALENDRONATE SODIUM
     Indication: Rheumatoid arthritis
  97. FOSAMAX [Concomitant]
     Active Substance: ALENDRONATE SODIUM
  98. GOLD [Concomitant]
     Active Substance: GOLD
     Indication: Product used for unknown indication
  99. GOLD SODIUM THIOMALATE [Concomitant]
     Active Substance: GOLD SODIUM THIOMALATE
     Indication: Product used for unknown indication
  100. GOLIMUMAB [Concomitant]
     Active Substance: GOLIMUMAB
     Indication: Rheumatoid arthritis
  101. GOLIMUMAB [Concomitant]
     Active Substance: GOLIMUMAB
     Indication: Prostatic specific antigen abnormal
  102. HYDROMORPHONE [Concomitant]
     Active Substance: HYDROMORPHONE
     Indication: Product used for unknown indication
  103. HYDROXYCHLOROQUINE [Concomitant]
     Active Substance: HYDROXYCHLOROQUINE
     Indication: Rheumatoid arthritis
  104. HYDROXYCHLOROQUINE [Concomitant]
     Active Substance: HYDROXYCHLOROQUINE
  105. HYDROXYCHLOROQUINE [Concomitant]
     Active Substance: HYDROXYCHLOROQUINE
  106. HYDROXYCHLOROQUINE [Concomitant]
     Active Substance: HYDROXYCHLOROQUINE
  107. HYDROXYCHLOROQUINE [Concomitant]
     Active Substance: HYDROXYCHLOROQUINE
  108. HYDROXYCHLOROQUINE [Concomitant]
     Active Substance: HYDROXYCHLOROQUINE
  109. HYDROXYCHLOROQUINE [Concomitant]
     Active Substance: HYDROXYCHLOROQUINE
  110. HYDROXYCHLOROQUINE [Concomitant]
     Active Substance: HYDROXYCHLOROQUINE
  111. INFLIXIMAB [Concomitant]
     Active Substance: INFLIXIMAB
     Indication: Rheumatoid arthritis
  112. INFLIXIMAB [Concomitant]
     Active Substance: INFLIXIMAB
  113. KEVZARA [Concomitant]
     Active Substance: SARILUMAB
     Indication: Rheumatoid arthritis
  114. LAMICTAL [Concomitant]
     Active Substance: LAMOTRIGINE
     Indication: Product used for unknown indication
  115. LAMICTAL [Concomitant]
     Active Substance: LAMOTRIGINE
  116. LAMICTAL [Concomitant]
     Active Substance: LAMOTRIGINE
  117. LAMOTRIGINE [Concomitant]
     Active Substance: LAMOTRIGINE
     Indication: Product used for unknown indication
  118. LAMOTRIGINE [Concomitant]
     Active Substance: LAMOTRIGINE
  119. LAMOTRIGINE [Concomitant]
     Active Substance: LAMOTRIGINE
  120. LEFLUNOMIDE [Concomitant]
     Active Substance: LEFLUNOMIDE
     Indication: Rheumatoid arthritis
  121. LEFLUNOMIDE [Concomitant]
     Active Substance: LEFLUNOMIDE
  122. LEFLUNOMIDE [Concomitant]
     Active Substance: LEFLUNOMIDE
  123. LEFLUNOMIDE [Concomitant]
     Active Substance: LEFLUNOMIDE
  124. LEFLUNOMIDE [Concomitant]
     Active Substance: LEFLUNOMIDE
  125. LEVOMILNACIPRAN [Concomitant]
     Active Substance: LEVOMILNACIPRAN
     Indication: Product used for unknown indication
  126. MAGNESIUM CITRATE [Concomitant]
     Active Substance: MAGNESIUM CITRATE
     Indication: Product used for unknown indication
  127. METHOTREXATE [Concomitant]
     Active Substance: METHOTREXATE
     Indication: Product used for unknown indication
  128. METHOTREXATE [Concomitant]
     Active Substance: METHOTREXATE
  129. METHOTREXATE [Concomitant]
     Active Substance: METHOTREXATE
  130. METHOTREXATE [Concomitant]
     Active Substance: METHOTREXATE
  131. METHYLPREDNISOLONE SODIUM SUCCINATE [Concomitant]
     Active Substance: METHYLPREDNISOLONE SODIUM SUCCINATE
     Indication: Rheumatoid arthritis
  132. MYRBETRIQ [Concomitant]
     Active Substance: MIRABEGRON
     Indication: Product used for unknown indication
     Dosage: EXTENDED- RELEASE TABLET
  133. MYRBETRIQ [Concomitant]
     Active Substance: MIRABEGRON
     Dosage: EXTENDED- RELEASE TABLET
  134. NAPROXEN [Concomitant]
     Active Substance: NAPROXEN
     Indication: Product used for unknown indication
  135. NAPROXEN SODIUM [Concomitant]
     Active Substance: NAPROXEN SODIUM
     Indication: Rheumatoid arthritis
  136. NUCALA [Concomitant]
     Active Substance: MEPOLIZUMAB
     Indication: Product used for unknown indication
  137. OXYCODONE [Concomitant]
     Active Substance: OXYCODONE
     Indication: Rheumatoid arthritis
  138. OXYCODONE TEREPHTHALATE [Concomitant]
     Active Substance: OXYCODONE TEREPHTHALATE
     Indication: Product used for unknown indication
  139. PANTOPRAZOLE [Concomitant]
     Active Substance: PANTOPRAZOLE
     Indication: Product used for unknown indication
  140. PHENYLEPHRINE HYDROCHLORIDE [Concomitant]
     Active Substance: PHENYLEPHRINE HYDROCHLORIDE
     Indication: Rheumatoid arthritis
  141. PHTHALYLSULFATHIAZOLE [Concomitant]
     Active Substance: PHTHALYLSULFATHIAZOLE
     Indication: Rheumatoid arthritis
  142. PHTHALYLSULFATHIAZOLE [Concomitant]
     Active Substance: PHTHALYLSULFATHIAZOLE
  143. PREDNISONE [Concomitant]
     Active Substance: PREDNISONE
     Indication: Rheumatoid arthritis
  144. PREDNISONE [Concomitant]
     Active Substance: PREDNISONE
  145. PREDNISONE [Concomitant]
     Active Substance: PREDNISONE
  146. RAMIPRIL [Concomitant]
     Active Substance: RAMIPRIL
     Indication: Rheumatoid arthritis
  147. RAMIPRIL [Concomitant]
     Active Substance: RAMIPRIL
  148. RAMIPRIL [Concomitant]
     Active Substance: RAMIPRIL
  149. RAMIPRIL [Concomitant]
     Active Substance: RAMIPRIL
  150. RANITIDINE HYDROCHLORIDE [Concomitant]
     Active Substance: RANITIDINE HYDROCHLORIDE
     Indication: Rheumatoid arthritis
  151. CETIRIZINE HYDROCHLORIDE\PSEUDOEPHEDRINE HYDROCHLORIDE [Concomitant]
     Active Substance: CETIRIZINE HYDROCHLORIDE\PSEUDOEPHEDRINE HYDROCHLORIDE
     Indication: Product used for unknown indication
     Dosage: PROLONGED-RELEASE TABLET
  152. CETIRIZINE HYDROCHLORIDE\PSEUDOEPHEDRINE HYDROCHLORIDE [Concomitant]
     Active Substance: CETIRIZINE HYDROCHLORIDE\PSEUDOEPHEDRINE HYDROCHLORIDE
     Dosage: EXTENDED- RELEASE
  153. CETIRIZINE HYDROCHLORIDE\PSEUDOEPHEDRINE HYDROCHLORIDE [Concomitant]
     Active Substance: CETIRIZINE HYDROCHLORIDE\PSEUDOEPHEDRINE HYDROCHLORIDE
     Dosage: PROLONGED-RELEASE TABLET
  154. CETIRIZINE HYDROCHLORIDE\PSEUDOEPHEDRINE HYDROCHLORIDE [Concomitant]
     Active Substance: CETIRIZINE HYDROCHLORIDE\PSEUDOEPHEDRINE HYDROCHLORIDE
     Dosage: PROLONGED-RELEASE TABLET
  155. CETIRIZINE HYDROCHLORIDE\PSEUDOEPHEDRINE HYDROCHLORIDE [Concomitant]
     Active Substance: CETIRIZINE HYDROCHLORIDE\PSEUDOEPHEDRINE HYDROCHLORIDE
     Dosage: PROLONGED-RELEASE TABLET
  156. REMICADE [Concomitant]
     Active Substance: INFLIXIMAB
     Indication: Rheumatoid arthritis
     Dosage: POWDER FOR SOLUTION INTRAVENOUS
  157. RITUXIMAB [Concomitant]
     Active Substance: RITUXIMAB
     Indication: Rheumatoid arthritis
  158. RITUXIMAB [Concomitant]
     Active Substance: RITUXIMAB
  159. RITUXIMAB [Concomitant]
     Active Substance: RITUXIMAB
  160. RITUXIMAB [Concomitant]
     Active Substance: RITUXIMAB
  161. RITUXIMAB [Concomitant]
     Active Substance: RITUXIMAB
  162. DIETARY SUPPLEMENT\HERBALS [Concomitant]
     Active Substance: DIETARY SUPPLEMENT\HERBALS
     Indication: Product used for unknown indication
  163. DIETARY SUPPLEMENT\HERBALS [Concomitant]
     Active Substance: DIETARY SUPPLEMENT\HERBALS
  164. SIMPONI [Concomitant]
     Active Substance: GOLIMUMAB
     Indication: Rheumatoid arthritis
  165. GOLD SODIUM THIOMALATE [Concomitant]
     Active Substance: GOLD SODIUM THIOMALATE
     Indication: Product used for unknown indication
  166. SULFASALAZINE [Concomitant]
     Active Substance: SULFASALAZINE
     Indication: Product used for unknown indication
  167. SULFASALAZINE [Concomitant]
     Active Substance: SULFASALAZINE
  168. SULFASALAZINE [Concomitant]
     Active Substance: SULFASALAZINE
  169. SULFASALAZINE [Concomitant]
     Active Substance: SULFASALAZINE
  170. SULFASALAZINE [Concomitant]
     Active Substance: SULFASALAZINE
  171. SULFASALAZINE [Concomitant]
     Active Substance: SULFASALAZINE
  172. SULFASALAZINE [Concomitant]
     Active Substance: SULFASALAZINE
  173. SULFASALAZINE [Concomitant]
     Active Substance: SULFASALAZINE
  174. SULFASALAZINE [Concomitant]
     Active Substance: SULFASALAZINE
  175. TOCILIZUMAB [Concomitant]
     Active Substance: TOCILIZUMAB
     Indication: Rheumatoid arthritis
  176. TOCILIZUMAB [Concomitant]
     Active Substance: TOCILIZUMAB
  177. TOFACITINIB [Concomitant]
     Active Substance: TOFACITINIB
     Indication: Rheumatoid arthritis
  178. TOPIRAMATE [Concomitant]
     Active Substance: TOPIRAMATE
     Indication: Rheumatoid arthritis
  179. TOPIRAMATE [Concomitant]
     Active Substance: TOPIRAMATE
  180. TOPIRAMATE [Concomitant]
     Active Substance: TOPIRAMATE
  181. TRAMADOL HYDROCHLORIDE [Concomitant]
     Active Substance: TRAMADOL HYDROCHLORIDE
     Indication: Product used for unknown indication
  182. VITAMIN C [Concomitant]
     Active Substance: ASCORBIC ACID
     Indication: Product used for unknown indication
  183. XELJANZ [Concomitant]
     Active Substance: TOFACITINIB CITRATE
     Indication: Rheumatoid arthritis
  184. BOTULINUM TOXIN TYPE A [Concomitant]
     Active Substance: BOTULINUM TOXIN TYPE A
     Indication: Product used for unknown indication
     Dosage: POWDER FOR SOLUTION
  185. BUPRENORPHINE [Concomitant]
     Active Substance: BUPRENORPHINE
     Indication: Product used for unknown indication
  186. CALCIUM LACTATE [Concomitant]
     Active Substance: CALCIUM LACTATE
     Indication: Product used for unknown indication
  187. FLUMETHASONE PIVALATE [Concomitant]
     Active Substance: FLUMETHASONE PIVALATE
     Indication: Product used for unknown indication
  188. HYDROCORTISONE ACETATE [Concomitant]
     Active Substance: HYDROCORTISONE ACETATE
     Indication: Product used for unknown indication
  189. NAPROSYN [Concomitant]
     Active Substance: NAPROXEN
     Indication: Rheumatoid arthritis
  190. VITAMIN D3 [Concomitant]
     Active Substance: CHOLECALCIFEROL
     Indication: Product used for unknown indication
  191. USTEKINUMAB [Concomitant]
     Active Substance: USTEKINUMAB
     Indication: Rheumatoid arthritis
  192. USTEKINUMAB [Concomitant]
     Active Substance: USTEKINUMAB
  193. STELARA [Concomitant]
     Active Substance: USTEKINUMAB
     Indication: Product used for unknown indication
  194. PANTOPRAZOLE SODIUM [Concomitant]
     Active Substance: PANTOPRAZOLE SODIUM
     Indication: Product used for unknown indication
  195. PSEUDOEPHEDRINE HYDROCHLORIDE [Concomitant]
     Active Substance: PSEUDOEPHEDRINE HYDROCHLORIDE
     Indication: Rheumatoid arthritis
  196. PSEUDOEPHEDRINE HYDROCHLORIDE [Concomitant]
     Active Substance: PSEUDOEPHEDRINE HYDROCHLORIDE
  197. CETIRIZINE HYDROCHLORIDE [Concomitant]
     Active Substance: CETIRIZINE HYDROCHLORIDE
     Indication: Rheumatoid arthritis
  198. CETIRIZINE HYDROCHLORIDE [Concomitant]
     Active Substance: CETIRIZINE HYDROCHLORIDE
  199. CETIRIZINE HYDROCHLORIDE [Concomitant]
     Active Substance: CETIRIZINE HYDROCHLORIDE
  200. CETIRIZINE HYDROCHLORIDE [Concomitant]
     Active Substance: CETIRIZINE HYDROCHLORIDE
  201. CETIRIZINE HYDROCHLORIDE [Concomitant]
     Active Substance: CETIRIZINE HYDROCHLORIDE
  202. CETIRIZINE HYDROCHLORIDE [Concomitant]
     Active Substance: CETIRIZINE HYDROCHLORIDE
  203. CETIRIZINE HYDROCHLORIDE [Concomitant]
     Active Substance: CETIRIZINE HYDROCHLORIDE
  204. CETIRIZINE HYDROCHLORIDE [Concomitant]
     Active Substance: CETIRIZINE HYDROCHLORIDE
  205. CETIRIZINE HYDROCHLORIDE [Concomitant]
     Active Substance: CETIRIZINE HYDROCHLORIDE
  206. CETIRIZINE HYDROCHLORIDE [Concomitant]
     Active Substance: CETIRIZINE HYDROCHLORIDE
  207. CETIRIZINE HYDROCHLORIDE [Concomitant]
     Active Substance: CETIRIZINE HYDROCHLORIDE
  208. CETIRIZINE HYDROCHLORIDE [Concomitant]
     Active Substance: CETIRIZINE HYDROCHLORIDE
  209. CETIRIZINE HYDROCHLORIDE [Concomitant]
     Active Substance: CETIRIZINE HYDROCHLORIDE
  210. CETIRIZINE HYDROCHLORIDE [Concomitant]
     Active Substance: CETIRIZINE HYDROCHLORIDE
  211. CETIRIZINE HYDROCHLORIDE [Concomitant]
     Active Substance: CETIRIZINE HYDROCHLORIDE
  212. CETIRIZINE HYDROCHLORIDE [Concomitant]
     Active Substance: CETIRIZINE HYDROCHLORIDE
  213. SARILUMAB [Concomitant]
     Active Substance: SARILUMAB
     Indication: Rheumatoid arthritis
  214. TRUXIMA [Concomitant]
     Active Substance: RITUXIMAB-ABBS
     Indication: Product used for unknown indication
  215. RAMIPRIL [Concomitant]
     Active Substance: RAMIPRIL
     Indication: Product used for unknown indication
  216. DOMPERIDONE MALEATE [Concomitant]
     Active Substance: DOMPERIDONE MALEATE
     Indication: Product used for unknown indication
  217. ACETAMINOPHEN [Concomitant]
     Active Substance: ACETAMINOPHEN
     Indication: Product used for unknown indication
  218. NAPROXEN [Concomitant]
     Active Substance: NAPROXEN
     Indication: Rheumatoid arthritis
  219. PHENYLEPHRINE HYDROCHLORIDE;THEOBROMA CACAO [Concomitant]
     Indication: Rheumatoid arthritis

REACTIONS (1)
  - Death [Fatal]
